FAERS Safety Report 8386996-4 (Version None)
Quarter: 2012Q2

REPORT INFORMATION
  Report Type: 
  Country: None (occurrence: None)
  Receive Date: 20120523
  Receipt Date: 20120510
  Transmission Date: 20120825
  Serious: Yes (Other)
  Sender: FDA-Public Use
  Company Number: 1268466

PATIENT
  Age: 65 Year
  Sex: Female
  Weight: 74 kg

DRUGS (14)
  1. (TROPISETRON) [Concomitant]
  2. MAGNESIUM SULFATE [Concomitant]
  3. FLUOROURACIL [Concomitant]
  4. LEUCOVORIN CALCIUM [Concomitant]
  5. OXALIPLATIN [Suspect]
     Indication: COLORECTAL CANCER
     Dosage: 140 MG, STAT, 100 MG, STAT, INTRAVENOUS DRIP
     Route: 041
     Dates: start: 20120111, end: 20120111
  6. OXALIPLATIN [Suspect]
     Indication: COLORECTAL CANCER
     Dosage: 140 MG, STAT, 100 MG, STAT, INTRAVENOUS DRIP
     Route: 041
     Dates: start: 20120208, end: 20120208
  7. OXALIPLATIN [Suspect]
     Indication: COLORECTAL CANCER
     Dosage: 140 MG, STAT, 100 MG, STAT, INTRAVENOUS DRIP
     Route: 041
     Dates: start: 20120125, end: 20120125
  8. OXALIPLATIN [Suspect]
     Indication: COLORECTAL CANCER
     Dosage: 140 MG, STAT, 100 MG, STAT, INTRAVENOUS DRIP
     Route: 041
     Dates: start: 20120222, end: 20120222
  9. CALCIUM GLUCONATE [Concomitant]
  10. HEPARIN [Concomitant]
  11. AVASTIN [Concomitant]
  12. (DEXAMETHASONE) [Concomitant]
  13. DEXTROSE [Concomitant]
  14. SODIUM CHLORIDE [Concomitant]

REACTIONS (7)
  - ERYTHEMA [None]
  - RASH PRURITIC [None]
  - NEUROPATHY PERIPHERAL [None]
  - RHINORRHOEA [None]
  - PARAESTHESIA [None]
  - INFLUENZA LIKE ILLNESS [None]
  - EYE SWELLING [None]
